FAERS Safety Report 17692697 (Version 1)
Quarter: 2020Q2

REPORT INFORMATION
  Report Type: Spontaneous
  Country: US (occurrence: US)
  Receive Date: 20200422
  Receipt Date: 20200422
  Transmission Date: 20200714
  Serious: Yes (Other)
  Sender: FDA-Public Use
  Company Number: None

PATIENT
  Sex: Female
  Weight: 90.7 kg

DRUGS (1)
  1. IOHEXOL [Suspect]
     Active Substance: IOHEXOL

REACTIONS (2)
  - Contrast media reaction [None]
  - Urticaria [None]

NARRATIVE: CASE EVENT DATE: 20200312
